FAERS Safety Report 7825939-6 (Version None)
Quarter: 2011Q4

REPORT INFORMATION
  Report Type: 
  Country: None (occurrence: None)
  Receive Date: 20111019
  Receipt Date: 20111011
  Transmission Date: 20120403
  Serious: Yes (Hospitalization, Disabling, Other)
  Sender: FDA-Public Use
  Company Number: BR-ROCHE-745674

PATIENT
  Sex: Female
  Weight: 40 kg

DRUGS (20)
  1. BACLOFEN [Concomitant]
     Indication: MUSCLE SPASMS
     Dosage: MUSCULAR RELAXANT DUE TO MUSCULAR SPASMS, DRUG REPORTED AS BACLOFENO
  2. PRELONE [Concomitant]
  3. AMITRIPTYLINE HCL [Concomitant]
  4. LYRICA [Concomitant]
  5. MABTHERA [Suspect]
     Indication: SYSTEMIC LUPUS ERYTHEMATOSUS
     Dosage: FORM INFUSION
     Route: 065
     Dates: start: 20100701, end: 20100801
  6. AZATHIOPRINE [Concomitant]
  7. ACTONEL [Concomitant]
     Indication: OSTEOPENIA
  8. SIMVASTATIN [Concomitant]
  9. BUP-4 [Concomitant]
  10. CYCLOSPORINE [Concomitant]
  11. NEXIUM [Concomitant]
  12. FOLIC ACID [Concomitant]
  13. ENOXAPARIN SODIUM [Concomitant]
  14. OMEPRAZOLE [Concomitant]
  15. NOOTROPIL [Concomitant]
  16. CALCORT [Concomitant]
  17. CYCLOPHOSPHAMIDE [Concomitant]
  18. ASPIRIN [Concomitant]
  19. PANTOPRAZOLE [Concomitant]
  20. CITONEURIN [Concomitant]
     Dosage: DOSE: 5000

REACTIONS (14)
  - HEMIPLEGIA [None]
  - RESPIRATORY PARALYSIS [None]
  - APHASIA [None]
  - RESPIRATORY FAILURE [None]
  - GASTRITIS [None]
  - DUODENAL ULCER [None]
  - SYSTEMIC LUPUS ERYTHEMATOSUS [None]
  - URINARY TRACT DISORDER [None]
  - WOUND [None]
  - CEREBROVASCULAR ACCIDENT [None]
  - AGEUSIA [None]
  - GASTRIC DISORDER [None]
  - DYSPHAGIA [None]
  - OESOPHAGITIS [None]
